FAERS Safety Report 8454172-2 (Version None)
Quarter: 2012Q2

REPORT INFORMATION
  Report Type: 
  Country: None (occurrence: None)
  Receive Date: 20120620
  Receipt Date: 20120612
  Transmission Date: 20120825
  Serious: Yes (Hospitalization, Other)
  Sender: FDA-Public Use
  Company Number: FR-ROCHE-1056061

PATIENT
  Age: 73 Year
  Sex: Male

DRUGS (24)
  1. MABTHERA [Suspect]
     Dosage: SECOND COURSE
     Route: 065
     Dates: start: 20080314
  2. MABTHERA [Suspect]
     Dosage: FIFTH COURSE
     Route: 065
     Dates: start: 20080619, end: 20091202
  3. CYCLOPHOSPHAMIDE [Concomitant]
     Dosage: THIRD COURSE
     Dates: start: 20080411
  4. FLUDARA [Concomitant]
     Dosage: FIFTH COURSE
     Route: 065
     Dates: start: 20080619
  5. BACTRIM [Concomitant]
     Dosage: SECOND COURSE
     Dates: start: 20090224
  6. BACTRIM [Concomitant]
     Dosage: THIRD COURSE
     Dates: start: 20090525
  7. CYCLOPHOSPHAMIDE [Concomitant]
     Dosage: FOURTH COURSE
     Dates: start: 20080509
  8. CYCLOPHOSPHAMIDE [Concomitant]
     Dosage: FIFTH COURSE
     Dates: start: 20080619
  9. BACTRIM [Concomitant]
     Indication: INFECTION PROPHYLAXIS
     Dosage: FIRST COURSE
     Dates: start: 20081124
  10. VALACYCLOVIR HYDROCHLORIDE [Concomitant]
     Dosage: THIRD COURSE
     Dates: start: 20090525
  11. VALACYCLOVIR HYDROCHLORIDE [Concomitant]
     Dosage: FOURTH COURSE
     Dates: start: 20090825
  12. FLUDARA [Concomitant]
     Indication: B-CELL LYMPHOMA
     Dosage: FIRST COURSE
     Dates: start: 20080215
  13. VALACYCLOVIR HYDROCHLORIDE [Concomitant]
     Indication: INFECTION PROPHYLAXIS
     Dosage: FIRST COURSE
     Dates: start: 20081124
  14. LEUCOVORIN CALCIUM [Concomitant]
  15. MABTHERA [Suspect]
     Dosage: FOURTH COURSE
     Route: 065
     Dates: start: 20080509
  16. FLUDARA [Concomitant]
     Dosage: FOURTH COURSE
     Route: 065
     Dates: start: 20080509
  17. VALACYCLOVIR HYDROCHLORIDE [Concomitant]
     Dosage: SECOND COURSE
     Dates: start: 20090224
  18. CYCLOPHOSPHAMIDE [Concomitant]
     Dosage: SECOND COURSE
     Dates: start: 20080314
  19. FLUDARA [Concomitant]
     Dosage: SECOND COURSE
     Route: 065
     Dates: start: 20080314
  20. BACTRIM [Concomitant]
     Dosage: FOURTH COURSE
     Dates: start: 20090825
  21. MABTHERA [Suspect]
     Indication: B-CELL LYMPHOMA
     Dosage: FIRST COURSE
     Route: 065
     Dates: start: 20080215
  22. MABTHERA [Suspect]
     Dosage: THIRD COURSE
     Route: 065
     Dates: start: 20080411
  23. CYCLOPHOSPHAMIDE [Concomitant]
     Indication: B-CELL LYMPHOMA
     Dosage: FIRST COURSE
     Dates: start: 20080215
  24. FLUDARA [Concomitant]
     Dosage: THIRD COURSE
     Route: 065
     Dates: start: 20080411

REACTIONS (2)
  - MYELODYSPLASTIC SYNDROME [None]
  - LUNG INFECTION [None]
